FAERS Safety Report 10835415 (Version 2)
Quarter: 2015Q3

REPORT INFORMATION
  Report Type: Spontaneous
  Country: US (occurrence: None)
  Receive Date: 20150218
  Receipt Date: 20150803
  Transmission Date: 20151125
  Serious: Yes (Death, Other)
  Sender: FDA-Public Use
  Company Number: ADR-2015-00327

PATIENT
  Age: 30 Year
  Sex: Male

DRUGS (1)
  1. BACLOFEN INTRATHECAL (500 MCG/ML) [Suspect]
     Active Substance: BACLOFEN
     Indication: MUSCLE SPASTICITY

REACTIONS (2)
  - Cardiac failure [None]
  - Cardiac arrest [None]

NARRATIVE: CASE EVENT DATE: 20150204
